FAERS Safety Report 18004434 (Version 10)
Quarter: 2021Q1

REPORT INFORMATION
  Report Type: Report from Study
  Country: US (occurrence: US)
  Receive Date: 20200709
  Receipt Date: 20210212
  Transmission Date: 20210419
  Serious: Yes (Life-Threatening, Hospitalization)
  Sender: FDA-Public Use
  Company Number: US-PFIZER INC-2020092058

PATIENT
  Age: 26 Year
  Sex: Female
  Weight: 66.2 kg

DRUGS (5)
  1. DEPO?PROVERA [Suspect]
     Active Substance: MEDROXYPROGESTERONE ACETATE
     Indication: CONTRACEPTION
     Dosage: 1 SYRINGE, EVERY 3 MONTHS
     Route: 058
     Dates: start: 2016, end: 20200310
  2. PREDNISONE. [Concomitant]
     Active Substance: PREDNISONE
     Indication: SYSTEMIC LUPUS ERYTHEMATOSUS
     Dosage: 10 MG, 1X/DAY
     Route: 048
     Dates: start: 20190402
  3. HYDROXYCHLOROQUINE [Concomitant]
     Active Substance: HYDROXYCHLOROQUINE
     Indication: SYSTEMIC LUPUS ERYTHEMATOSUS
     Dosage: 200 MG, 2X/DAY
     Route: 048
     Dates: start: 201507
  4. PF?06700841. [Suspect]
     Active Substance: PF-06700841
     Indication: SYSTEMIC LUPUS ERYTHEMATOSUS
     Dosage: 15 MG, 1X/DAY
     Route: 048
     Dates: start: 20191121, end: 20200227
  5. TYLENOL WITH CODEINE [Concomitant]
     Active Substance: ACETAMINOPHEN\CODEINE PHOSPHATE
     Indication: SYSTEMIC LUPUS ERYTHEMATOSUS
     Dosage: 4 MG, 4X/DAY
     Route: 048
     Dates: start: 2015

REACTIONS (1)
  - Cerebrovascular accident [Recovered/Resolved with Sequelae]

NARRATIVE: CASE EVENT DATE: 20200225
